FAERS Safety Report 16127652 (Version 1)
Quarter: 2019Q1

REPORT INFORMATION
  Report Type: Spontaneous
  Country: US (occurrence: US)
  Receive Date: 20190222
  Receipt Date: 20190222
  Transmission Date: 20190418
  Serious: Yes (Death, Hospitalization)
  Sender: FDA-Public Use
  Company Number: None

PATIENT
  Age: 3 Year
  Sex: Male
  Weight: 14.6 kg

DRUGS (6)
  1. DEXAMETHASONE. [Suspect]
     Active Substance: DEXAMETHASONE
     Dates: end: 20190207
  2. METHOTREXATE. [Suspect]
     Active Substance: METHOTREXATE
     Dates: end: 20190201
  3. ONCASPAR [Suspect]
     Active Substance: PEGASPARGASE
     Dates: end: 20190128
  4. CYTARABINE. [Suspect]
     Active Substance: CYTARABINE
     Dates: end: 20190125
  5. DAUNORUBICIN [Suspect]
     Active Substance: DAUNORUBICIN
     Dates: end: 20190201
  6. VINCRISTINE [Suspect]
     Active Substance: VINCRISTINE
     Dates: end: 20190201

REACTIONS (10)
  - Platelet count decreased [None]
  - Subarachnoid haemorrhage [None]
  - Sepsis [None]
  - Cardiac arrest [None]
  - Brain injury [None]
  - Abdominal pain [None]
  - Pseudomonas test positive [None]
  - White blood cell count decreased [None]
  - Neutrophil count decreased [None]
  - Intussusception [None]

NARRATIVE: CASE EVENT DATE: 20190207
